FAERS Safety Report 4307912-8 (Version None)
Quarter: 2004Q1

REPORT INFORMATION
  Report Type: 
  Country: None (occurrence: None)
  Receive Date: 20040226
  Receipt Date: 20030627
  Transmission Date: 20041129
  Serious: Yes (Hospitalization)
  Sender: FDA-Public Use
  Company Number: 2003164678US

PATIENT
  Age: 37 Year
  Sex: Male

DRUGS (19)
  1. BEXTRA [Suspect]
     Indication: RHEUMATOID ARTHRITIS
     Dosage: UNK, UNK; ORAL
     Route: 048
     Dates: start: 20021101, end: 20021116
  2. CELEBREX [Suspect]
     Dosage: UNK, UNK, UNK
     Route: 065
     Dates: end: 20021116
  3. VIREAD [Suspect]
     Indication: HIV INFECTION
     Dosage: 300 UNK, UNK, UNK
     Route: 065
     Dates: end: 20021116
  4. FORTOVASE [Suspect]
     Indication: HIV INFECTION
     Dosage: UNK, UNK, UNK
     Route: 065
     Dates: end: 20021116
  5. ZERIT [Suspect]
     Indication: HIV INFECTION
     Dosage: UNK, UNK, UNK
     Route: 065
     Dates: end: 20021116
  6. KALETRA [Suspect]
     Dosage: UNK, UNK, UNK
     Route: 065
     Dates: end: 20021116
  7. PHENERGAN [Suspect]
     Dosage: UNK, UNK, UNK
     Route: 065
     Dates: end: 20021116
  8. AMBIEN [Suspect]
     Dosage: UNK, UNK, UNK
     Route: 065
     Dates: end: 20021116
  9. ENSURE (VITAMINS NOS) [Suspect]
     Dosage: UNK, UNK, UNK
     Route: 065
     Dates: end: 20021116
  10. TRICOR [Suspect]
     Dosage: UNK, UNK, UNK
     Route: 065
     Dates: end: 20021116
  11. DULCOLAX [Suspect]
     Dosage: UNK, UNK, UNK
     Route: 065
     Dates: end: 20021116
  12. MARINOL [Suspect]
     Dosage: UNK, UNK, UNK
     Route: 065
     Dates: end: 20021116
  13. SOMA [Suspect]
     Dosage: UNK, UNK, UNK
     Route: 065
     Dates: end: 20021116
  14. BACTRIM DS [Suspect]
     Dosage: UNK, UNK, UNK
     Route: 065
     Dates: end: 20021116
  15. BIAXIN [Suspect]
     Dosage: UNK, UNK, UNK
     Route: 065
     Dates: end: 20021116
  16. PROTONIX [Suspect]
     Dosage: UNK, UNK, UNK
     Route: 065
     Dates: end: 20021116
  17. OXANDRIN [Suspect]
     Dosage: UNK, UNK, UNK
     Route: 065
     Dates: end: 20021116
  18. NEURONTIN [Suspect]
     Dosage: UNK, UNK, UNK
     Route: 065
     Dates: end: 20021116
  19. COLCHICINE (COLCHICINE) [Suspect]
     Indication: GOUT
     Dosage: UNK, UNK, UNK
     Route: 065
     Dates: start: 20021101

REACTIONS (9)
  - ASTHENIA [None]
  - DIFFICULTY IN WALKING [None]
  - FLUSHING [None]
  - MUSCLE TWITCHING [None]
  - MYALGIA [None]
  - NAUSEA [None]
  - RENAL FAILURE ACUTE [None]
  - SOMNOLENCE [None]
  - VOMITING [None]
